FAERS Safety Report 6174675-3 (Version None)
Quarter: 2009Q2

REPORT INFORMATION
  Report Type: 
  Country: None (occurrence: None)
  Receive Date: 20090430
  Receipt Date: 20090422
  Transmission Date: 20091009
  Serious: Yes (Hospitalization)
  Sender: FDA-Public Use
  Company Number: GB-AMGEN-QUU344041

PATIENT
  Age: 64 Year
  Sex: Female
  Weight: 52.6 kg

DRUGS (4)
  1. ARANESP [Suspect]
     Indication: DRUG USE FOR UNKNOWN INDICATION
     Route: 058
     Dates: start: 20090127, end: 20090324
  2. AZATHIOPRINE [Concomitant]
     Route: 048
     Dates: start: 20070821
  3. LOSARTAN POSTASSIUM [Concomitant]
     Route: 048
     Dates: start: 20090127
  4. OMEPRAZOLE [Concomitant]
     Route: 048
     Dates: start: 20070420

REACTIONS (3)
  - COUGH [None]
  - DYSPNOEA [None]
  - FATIGUE [None]
